FAERS Safety Report 4843496-3 (Version None)
Quarter: 2005Q4

REPORT INFORMATION
  Report Type: 
  Country: None (occurrence: None)
  Receive Date: 20051202
  Receipt Date: 20051121
  Transmission Date: 20060501
  Serious: Yes (Other)
  Sender: FDA-Public Use
  Company Number: PHEH2005US12823

PATIENT
  Sex: Male

DRUGS (2)
  1. TOPROL-XL [Suspect]
  2. DIOVAN [Suspect]
     Dosage: UNK
     Route: 048

REACTIONS (2)
  - DEPRESSION [None]
  - WEIGHT INCREASED [None]
